FAERS Safety Report 12623419 (Version 2)
Quarter: 2016Q4

REPORT INFORMATION
  Report Type: Report from Study
  Country: US (occurrence: US)
  Receive Date: 20160804
  Receipt Date: 20161031
  Transmission Date: 20170207
  Serious: No
  Sender: FDA-Public Use
  Company Number: GXBR2016US002218

PATIENT
  Age: 9 Year
  Sex: Male
  Weight: 21.2 kg

DRUGS (1)
  1. OMNITROPE [Suspect]
     Active Substance: SOMATROPIN
     Indication: BODY HEIGHT BELOW NORMAL
     Dosage: 0.9 MG, QD
     Route: 065
     Dates: start: 20160701

REACTIONS (4)
  - Injection site pain [Not Recovered/Not Resolved]
  - Fatigue [Not Recovered/Not Resolved]
  - Incorrect dose administered [Not Recovered/Not Resolved]
  - Wrong device used [Not Recovered/Not Resolved]

NARRATIVE: CASE EVENT DATE: 20160701
